FAERS Safety Report 10735381 (Version 2)
Quarter: 2015Q1

REPORT INFORMATION
  Report Type: Report from Study
  Country: CO (occurrence: CO)
  Receive Date: 20150125
  Receipt Date: 20150129
  Transmission Date: 20150721
  Serious: Yes (Death)
  Sender: FDA-Public Use
  Company Number: CO-AMGEN-COLSL2015006230

PATIENT
  Age: 62 Year
  Sex: Male

DRUGS (1)
  1. VECTIBIX [Suspect]
     Active Substance: PANITUMUMAB
     Indication: COLORECTAL CANCER METASTATIC
     Dosage: 350 MG, Q2WK
     Route: 042
     Dates: start: 20140918

REACTIONS (1)
  - Death [Fatal]

NARRATIVE: CASE EVENT DATE: 20141214
